FAERS Safety Report 5246140-9 (Version None)
Quarter: 2007Q1

REPORT INFORMATION
  Report Type: 
  Country: None (occurrence: None)
  Receive Date: 20070220
  Receipt Date: 20070202
  Transmission Date: 20070707
  Serious: Yes (Death)
  Sender: FDA-Public Use
  Company Number: 8021888

PATIENT
  Age: 6 Year
  Sex: Male

DRUGS (2)
  1. KEPPRA [Suspect]
  2. LUMINAL [Concomitant]

REACTIONS (1)
  - RESPIRATORY FAILURE [None]
